FAERS Safety Report 19306111 (Version 1)
Quarter: 2021Q2

REPORT INFORMATION
  Report Type: Report from Study
  Country: US (occurrence: US)
  Receive Date: 20210525
  Receipt Date: 20210525
  Transmission Date: 20210717
  Serious: No
  Sender: FDA-Public Use
  Company Number: NVSC2021US116117

PATIENT
  Sex: Female

DRUGS (6)
  1. AFINITOR [Suspect]
     Active Substance: EVEROLIMUS
     Indication: HEPATIC CANCER
  2. AFINITOR [Suspect]
     Active Substance: EVEROLIMUS
     Indication: BRAIN NEOPLASM MALIGNANT
  3. AFINITOR [Suspect]
     Active Substance: EVEROLIMUS
     Indication: CHOLANGIOCARCINOMA
  4. AFINITOR [Suspect]
     Active Substance: EVEROLIMUS
     Indication: BREAST CANCER FEMALE
     Dosage: 5 MG, QD
     Route: 048
  5. AFINITOR [Suspect]
     Active Substance: EVEROLIMUS
     Indication: METASTASES TO BONE
  6. AFINITOR [Suspect]
     Active Substance: EVEROLIMUS
     Indication: METASTATIC LYMPHOMA

REACTIONS (2)
  - Aphthous ulcer [Unknown]
  - Dysarthria [Unknown]
